FAERS Safety Report 4979688-2 (Version None)
Quarter: 2006Q2

REPORT INFORMATION
  Report Type: 
  Country: None (occurrence: None)
  Receive Date: 20060418
  Receipt Date: 20060407
  Transmission Date: 20061013
  Serious: Yes (Hospitalization)
  Sender: FDA-Public Use
  Company Number: 200610335BFR

PATIENT
  Sex: 0

DRUGS (2)
  1. MOXIFLOXACIN HYDROCHLORIDE [Suspect]
     Indication: TUBERCULOSIS
     Dosage: 400 MG, TOTAL DAILY, ORAL
     Route: 048
  2. RIMIFON [Concomitant]

REACTIONS (1)
  - DRUG ERUPTION [None]
